FAERS Safety Report 9289183 (Version 2)
Quarter: 2013Q2

REPORT INFORMATION
  Report Type: Spontaneous
  Country: US (occurrence: US)
  Receive Date: 20130514
  Receipt Date: 20130520
  Transmission Date: 20140414
  Serious: Yes (Hospitalization)
  Sender: FDA-Public Use
  Company Number: CHPA2013US008147

PATIENT
  Sex: Female

DRUGS (1)
  1. EXCEDRIN UNKNOWN [Suspect]
     Dosage: UNK, UNK
     Route: 048

REACTIONS (1)
  - Migraine [Unknown]
